FAERS Safety Report 12133988 (Version 1)
Quarter: 2016Q1

REPORT INFORMATION
  Report Type: Spontaneous
  Country: US (occurrence: US)
  Receive Date: 20160301
  Receipt Date: 20160301
  Transmission Date: 20160526
  Serious: No
  Sender: FDA-Public Use
  Company Number: US-INSYS THERAPEUTICS, INC-INS201506-000256

PATIENT
  Sex: Male

DRUGS (7)
  1. LYRICA [Concomitant]
     Active Substance: PREGABALIN
  2. SUBSYS [Suspect]
     Active Substance: FENTANYL
     Indication: INTERVERTEBRAL DISC DISPLACEMENT
  3. LIDOCAINE PATCHES [Concomitant]
  4. MORPHINE [Concomitant]
     Active Substance: MORPHINE
     Indication: BACK DISORDER
  5. SUBSYS [Suspect]
     Active Substance: FENTANYL
     Indication: LUMBAR SPINAL STENOSIS
  6. VIMOVO [Concomitant]
     Active Substance: ESOMEPRAZOLE MAGNESIUM\NAPROXEN
  7. FLEXERIL [Concomitant]
     Active Substance: CYCLOBENZAPRINE HYDROCHLORIDE

REACTIONS (3)
  - Application site pain [Unknown]
  - Drug ineffective for unapproved indication [Unknown]
  - Product quality issue [Unknown]
